FAERS Safety Report 8910960 (Version 1)
Quarter: 2012Q4

REPORT INFORMATION
  Report Type: 
  Country: US (occurrence: US)
  Receive Date: 20121116
  Receipt Date: 20121116
  Transmission Date: 20130627
  Serious: No
  Sender: FDA-Public Use
  Company Number: US-JNJFOC-20121004357

PATIENT
  Age: 28 Year
  Sex: Female

DRUGS (3)
  1. INVEGA [Suspect]
     Indication: PSYCHOTIC DISORDER
     Dosage: 6 mg two pills
     Route: 048
  2. INVEGA [Suspect]
     Indication: BIPOLAR DISORDER
     Dosage: 6 mg two pills
     Route: 048
  3. OXCARBAZEPINE [Concomitant]
     Indication: PRODUCT USED FOR UNKNOWN INDICATION
     Route: 048

REACTIONS (1)
  - Hyperprolactinaemia [Unknown]
